FAERS Safety Report 8823650 (Version 5)
Quarter: 2015Q1

REPORT INFORMATION
  Report Type: Report from Study
  Country: BE (occurrence: BE)
  Receive Date: 20121003
  Receipt Date: 20150227
  Transmission Date: 20150721
  Serious: Yes (Hospitalization, Other)
  Sender: FDA-Public Use
  Company Number: BE-TEVA-362263USA

PATIENT
  Age: 84 Year
  Sex: Female
  Weight: 44.8 kg

DRUGS (3)
  1. BENDAMUSTINE [Suspect]
     Active Substance: BENDAMUSTINE
     Indication: B-CELL LYMPHOMA
     Dosage: 124 MILLIGRAM DAILY;
     Route: 042
     Dates: start: 20120227
  2. RITUXIMAB [Suspect]
     Active Substance: RITUXIMAB
     Indication: B-CELL LYMPHOMA
     Dosage: 517 MILLIGRAM DAILY;
     Route: 042
     Dates: start: 20120227
  3. RITUXIMAB [Suspect]
     Active Substance: RITUXIMAB
     Dosage: 517 MILLIGRAM DAILY;
     Route: 042
     Dates: start: 20120521

REACTIONS (3)
  - Dyspnoea [Recovered/Resolved]
  - Pyrexia [Recovered/Resolved]
  - Cholelithiasis [Recovered/Resolved]

NARRATIVE: CASE EVENT DATE: 20120529
